FAERS Safety Report 4614231-9 (Version None)
Quarter: 2005Q1

REPORT INFORMATION
  Report Type: 
  Country: None (occurrence: None)
  Receive Date: 20050315
  Receipt Date: 20050224
  Transmission Date: 20050727
  Serious: Yes (Hospitalization)
  Sender: FDA-Public Use
  Company Number: 20050200046

PATIENT
  Age: 80 Year
  Sex: Female

DRUGS (6)
  1. ATIVAN [Suspect]
     Dosage: 2 MG QD
     Dates: start: 20020101
  2. RISPERDAL [Suspect]
     Dosage: 1.5 MG QD
     Dates: start: 20020101
  3. ZOLOFT [Suspect]
     Dosage: 50 MG QD
     Dates: start: 20020101
  4. RAMIPRIL [Concomitant]
  5. XIMOVAN (ZOPICLONE) [Concomitant]
  6. ACETAMINOPHEN [Concomitant]

REACTIONS (3)
  - DRUG INTERACTION [None]
  - PULMONARY EMBOLISM [None]
  - THROMBOSIS [None]
